FAERS Safety Report 24101515 (Version 1)
Quarter: 2024Q3

REPORT INFORMATION
  Report Type: Spontaneous
  Country: US (occurrence: US)
  Receive Date: 20240717
  Receipt Date: 20240717
  Transmission Date: 20241016
  Serious: No
  Sender: NOVO NORDISK
  Company Number: US-NOVOPROD-1228864

PATIENT
  Sex: Female

DRUGS (1)
  1. OZEMPIC [Suspect]
     Active Substance: SEMAGLUTIDE
     Indication: Weight control
     Dosage: .25MG
     Route: 058

REACTIONS (6)
  - Headache [Unknown]
  - Nausea [Unknown]
  - Eructation [Unknown]
  - Diarrhoea [Unknown]
  - Product used for unknown indication [Unknown]
  - Prescription drug used without a prescription [Unknown]
